FAERS Safety Report 5110854-1 (Version None)
Quarter: 2006Q3

REPORT INFORMATION
  Report Type: 
  Country: None (occurrence: None)
  Receive Date: 20060919
  Receipt Date: 20060815
  Transmission Date: 20061208
  Serious: Yes (Other)
  Sender: FDA-Public Use
  Company Number: 2006101777

PATIENT
  Age: 45 Year
  Sex: Male
  Weight: 96.6162 kg

DRUGS (9)
  1. CHANTIX [Suspect]
     Indication: SMOKING CESSATION THERAPY
     Dosage: 0.5 MG (0.5  MG, 1 IN 1 D)
     Dates: start: 20060809
  2. ALCOHOL (ETHANOL) [Suspect]
     Indication: DRUG USE FOR UNKNOWN INDICATION
  3. PROZAC [Concomitant]
  4. MULTIVITAMIN [Concomitant]
  5. FISH OIL (FISH OIL) [Concomitant]
  6. ASPIRIN [Concomitant]
  7. PAROXETINE [Concomitant]
  8. ATENOLOL [Concomitant]
  9. NEXIUM [Concomitant]

REACTIONS (2)
  - ALCOHOL INTERACTION [None]
  - HALLUCINATION [None]
